FAERS Safety Report 13037701 (Version 2)
Quarter: 2016Q4

REPORT INFORMATION
  Report Type: Report from Study
  Country: US (occurrence: US)
  Receive Date: 20161217
  Receipt Date: 20161226
  Transmission Date: 20170207
  Serious: Yes (Hospitalization)
  Sender: FDA-Public Use
  Company Number: US-ASTRAZENECA-2016SF30934

PATIENT
  Age: 25544 Day
  Sex: Male

DRUGS (24)
  1. NORTRIPTYLINE [Concomitant]
     Active Substance: NORTRIPTYLINE
     Indication: NEURALGIA
     Dosage: 25 MG QD, QAM, QHS
     Route: 048
     Dates: start: 20091109
  2. ACETAMINOPHEN AND CODEINE [Concomitant]
     Active Substance: ACETAMINOPHEN\CODEINE PHOSPHATE
     Indication: RHEUMATOID ARTHRITIS
     Dosage: 60/4 MG PRN
     Route: 048
     Dates: start: 20130913
  3. ASPIRIN. [Concomitant]
     Active Substance: ASPIRIN
     Indication: PROPHYLAXIS
     Dosage: 81 MG QD, QAM, QHS
     Route: 048
     Dates: start: 20080401
  4. GLIPIZIDE. [Concomitant]
     Active Substance: GLIPIZIDE
     Indication: DIABETES MELLITUS
     Route: 048
     Dates: start: 20111014
  5. PREDNISONE. [Concomitant]
     Active Substance: PREDNISONE
     Indication: CHRONIC OBSTRUCTIVE PULMONARY DISEASE
     Dosage: 7.5 MG QD, QAM, QHS
     Route: 048
     Dates: start: 20120809
  6. RANITIDINE. [Concomitant]
     Active Substance: RANITIDINE
     Indication: GASTROOESOPHAGEAL REFLUX DISEASE
     Route: 048
     Dates: start: 20130403
  7. ZINC OXIDE OINTMENT [Concomitant]
     Indication: DERMATITIS
     Dosage: 20 % OTHER PRN
     Route: 061
     Dates: start: 20140724
  8. DOCUSATE [Concomitant]
     Active Substance: DOCUSATE
     Indication: GASTROOESOPHAGEAL REFLUX PROPHYLAXIS
     Route: 048
     Dates: start: 20130213
  9. KETOCONAZOLE. [Concomitant]
     Active Substance: KETOCONAZOLE
     Indication: DERMATITIS
     Dosage: 2 OTHER BID
     Route: 061
     Dates: start: 20140724
  10. KETOCONAZOLE. [Concomitant]
     Active Substance: KETOCONAZOLE
     Indication: DERMATITIS
     Dosage: 2 OTHER QD, QAM, QHS
     Route: 061
     Dates: start: 20140724
  11. METFORMIN [Concomitant]
     Active Substance: METFORMIN HYDROCHLORIDE
     Indication: TYPE 2 DIABETES MELLITUS
     Route: 048
     Dates: start: 20090911
  12. TRIAMCINOLONE ACETONIDE OINTMENT [Concomitant]
     Indication: DERMATITIS
     Dosage: 0.1 OTHER BID
     Route: 061
     Dates: start: 20140724
  13. FISH OIL [Concomitant]
     Active Substance: FISH OIL
     Indication: PROPHYLAXIS
     Route: 048
     Dates: start: 20141014
  14. FOLIC ACID. [Concomitant]
     Active Substance: FOLIC ACID
     Indication: HYPOVITAMINOSIS
     Dosage: 1 MG QD, QAM, QHS
     Route: 048
     Dates: start: 20111014
  15. LISINOPRIL. [Concomitant]
     Active Substance: LISINOPRIL
     Indication: HYPERTENSION
     Dosage: 5 MG QD, QAM, QHS
     Route: 048
     Dates: start: 20140830
  16. CYANOCOBALAMIN. [Concomitant]
     Active Substance: CYANOCOBALAMIN
     Indication: VITAMIN B12
     Dosage: 1000 UG QD, QAM, QHS
     Route: 048
     Dates: start: 20120225
  17. LEVOTHYROXINE. [Concomitant]
     Active Substance: LEVOTHYROXINE
     Indication: THYROID HORMONE REPLACEMENT THERAPY
     Dosage: .075 MG QD, QAM, QHS
     Route: 048
     Dates: start: 20090911
  18. ACLIDINIUM BROMIDE [Suspect]
     Active Substance: ACLIDINIUM BROMIDE
     Indication: CHRONIC OBSTRUCTIVE PULMONARY DISEASE
     Route: 055
     Dates: start: 20141204, end: 20150322
  19. ACLIDINIUM BROMIDE [Suspect]
     Active Substance: ACLIDINIUM BROMIDE
     Indication: CHRONIC OBSTRUCTIVE PULMONARY DISEASE
     Route: 055
     Dates: start: 20150323, end: 20150618
  20. ATORVASTATIN CALCIUM. [Concomitant]
     Active Substance: ATORVASTATIN CALCIUM
     Indication: HYPERLIPIDAEMIA
     Dosage: 40 MG QD, QAM, QHS PO
     Route: 048
     Dates: start: 20140724
  21. HYDROCORTISONE CREAM [Concomitant]
     Active Substance: HYDROCORTISONE
     Indication: DERMATITIS
     Dosage: 1 OTHER BID
     Route: 061
     Dates: start: 20140724
  22. METOPROLOL. [Concomitant]
     Active Substance: METOPROLOL
     Indication: HYPERTENSION
     Route: 048
     Dates: start: 20080214
  23. ACLIDINIUM BROMIDE [Suspect]
     Active Substance: ACLIDINIUM BROMIDE
     Indication: CHRONIC OBSTRUCTIVE PULMONARY DISEASE
     Route: 055
     Dates: start: 20150619, end: 20150915
  24. CHOLECALCIFEROL [Concomitant]
     Active Substance: CHOLECALCIFEROL
     Indication: VITAMIN D
     Dosage: 1000 IU QD, QAM, QHS
     Route: 048
     Dates: start: 20140724

REACTIONS (1)
  - Pneumonia [Not Recovered/Not Resolved]

NARRATIVE: CASE EVENT DATE: 20161125
